FAERS Safety Report 7904071-7 (Version None)
Quarter: 2011Q4

REPORT INFORMATION
  Report Type: 
  Country: None (occurrence: None)
  Receive Date: 20111109
  Receipt Date: 20111103
  Transmission Date: 20120403
  Serious: Yes (Hospitalization)
  Sender: FDA-Public Use
  Company Number: US-MERCK-1106USA03840

PATIENT
  Age: 41 Year
  Sex: Male

DRUGS (1)
  1. FOSAMAX [Suspect]
     Indication: OSTEOPOROSIS
     Route: 048
     Dates: start: 19970101, end: 20100101

REACTIONS (7)
  - FEMUR FRACTURE [None]
  - BENIGN PROSTATIC HYPERPLASIA [None]
  - HYPERTENSION [None]
  - HEADACHE [None]
  - TOOTH DISORDER [None]
  - FALL [None]
  - ANXIETY [None]
